FAERS Safety Report 5441538-8 (Version None)
Quarter: 2007Q3

REPORT INFORMATION
  Report Type: 
  Country: None (occurrence: None)
  Receive Date: 20070829
  Receipt Date: 20070821
  Transmission Date: 20080115
  Serious: Yes (Life-Threatening)
  Sender: FDA-Public Use
  Company Number: DSJ-2007-06087

PATIENT
  Age: 67 Year
  Sex: Male
  Weight: 60 kg

DRUGS (5)
  1. OLMETEC (OLMESARTAN MEDOXOMIL) (TABLET) (OLMESARTAN [Suspect]
     Indication: ESSENTIAL HYPERTENSION
     Dosage: 20 MG (20 MG, 1 IN 1 D), PER ORAL
     Route: 048
     Dates: start: 20061215, end: 20070311
  2. MEVALOTIN (PRAVASTATIN SODIUM)(PRAVASTATIN SODIUM) [Suspect]
     Dosage: 5 MG (5 MG, 1 IN 1 D), PER ORAL
     Route: 048
  3. NITOROL R (ISOSORBIDE DINITRATE) ( ISOSORBIDE DINITRATE) [Suspect]
     Dosage: 20 MG (20 MG, 1 IN 1 D), PER ORAL
     Route: 048
  4. MYSLEE (ZOLPIDEM TARTRATE) (ZOLPIDEM TARTRATE) [Suspect]
     Dosage: 10 MG (10 MG, 1 IN 1 D), PER ORAL
     Route: 048
     Dates: end: 20070604
  5. PRERAN (TRANDOLAPRIL) (TRANDOLAPRIL) [Concomitant]

REACTIONS (1)
  - GLOSSOPTOSIS [None]
